FAERS Safety Report 17574264 (Version 3)
Quarter: 2020Q2

REPORT INFORMATION
  Report Type: Report from Study
  Country: None (occurrence: CA)
  Receive Date: 20200324
  Receipt Date: 20200406
  Transmission Date: 20200713
  Serious: Yes (Other)
  Sender: FDA-Public Use
  Company Number: CA-ABBVIE-20K-028-3241874-00

PATIENT
  Sex: Male
  Weight: 61.29 kg

DRUGS (2)
  1. HUMIRA [Suspect]
     Active Substance: ADALIMUMAB
     Indication: CROHN^S DISEASE
     Route: 058
     Dates: start: 20190806
  2. HUMIRA [Suspect]
     Active Substance: ADALIMUMAB
     Route: 058
     Dates: end: 20200107

REACTIONS (18)
  - Acrochordon [Not Recovered/Not Resolved]
  - Abdominal abscess [Not Recovered/Not Resolved]
  - Intestinal obstruction [Not Recovered/Not Resolved]
  - Weight decreased [Not Recovered/Not Resolved]
  - Abdominal tenderness [Not Recovered/Not Resolved]
  - Gastrointestinal mucosa hyperaemia [Unknown]
  - Abdominal pain [Not Recovered/Not Resolved]
  - Haemorrhoids [Not Recovered/Not Resolved]
  - Lipoma [Not Recovered/Not Resolved]
  - Drug ineffective [Not Recovered/Not Resolved]
  - Malaise [Not Recovered/Not Resolved]
  - C-reactive protein increased [Unknown]
  - Intestinal stenosis [Unknown]
  - Large intestine polyp [Not Recovered/Not Resolved]
  - Intestinal dilatation [Unknown]
  - Intestinal dilatation [Not Recovered/Not Resolved]
  - Lymphadenopathy [Not Recovered/Not Resolved]
  - Intestinal fibrosis [Unknown]
